FAERS Safety Report 25127747 (Version 2)
Quarter: 2025Q2

REPORT INFORMATION
  Report Type: Spontaneous
  Country: CA (occurrence: CA)
  Receive Date: 20250327
  Receipt Date: 20250618
  Transmission Date: 20250716
  Serious: Yes (Hospitalization, Other)
  Sender: TEVA
  Company Number: CA-TEVA-VS-3314969

PATIENT
  Age: 57 Year
  Sex: Male

DRUGS (10)
  1. NALOXONE HYDROCHLORIDE [Suspect]
     Active Substance: NALOXONE HYDROCHLORIDE
     Indication: Drug abuse
     Route: 065
  2. BUPRENORPHINE [Suspect]
     Active Substance: BUPRENORPHINE
     Indication: Drug abuse
     Route: 065
  3. ARIPIPRAZOLE [Suspect]
     Active Substance: ARIPIPRAZOLE
     Indication: Antipsychotic therapy
     Dosage: DOSE FORM: NOT SPECIFIED
     Route: 065
  4. QUETIAPINE [Suspect]
     Active Substance: QUETIAPINE
     Indication: Antipsychotic therapy
     Route: 065
  5. ZOPICLONE [Suspect]
     Active Substance: ZOPICLONE
     Indication: Antipsychotic therapy
     Route: 065
  6. DULOXETINE [Suspect]
     Active Substance: DULOXETINE
     Indication: Antipsychotic therapy
     Dosage: DOSE FORM: NOT SPECIFIED
     Route: 065
  7. DULOXETINE [Suspect]
     Active Substance: DULOXETINE
     Indication: Antipsychotic therapy
     Dosage: DULOXETINE HYDROCHLORIDE, DOSE FORM: CAPSULE, DELAYED RELEASE
     Route: 065
  8. MIRTAZAPINE [Suspect]
     Active Substance: MIRTAZAPINE
     Indication: Antipsychotic therapy
     Route: 065
  9. CITALOPRAM [Suspect]
     Active Substance: CITALOPRAM
     Indication: Antipsychotic therapy
     Route: 065
  10. BUPRENORPHINE HYDROCHLORIDE\NALOXONE HYDROCHLORIDE [Suspect]
     Active Substance: BUPRENORPHINE HYDROCHLORIDE\NALOXONE HYDROCHLORIDE
     Indication: Back pain
     Route: 065

REACTIONS (6)
  - Dementia [Recovered/Resolved]
  - Overdose [Recovered/Resolved]
  - Product use in unapproved indication [Recovered/Resolved]
  - Delirium [Recovered/Resolved]
  - Rhabdomyolysis [Recovered/Resolved]
  - Acute kidney injury [Recovered/Resolved]
